FAERS Safety Report 10093108 (Version 1)
Quarter: 2014Q2

REPORT INFORMATION
  Report Type: Spontaneous
  Country: US (occurrence: US)
  Receive Date: 20140421
  Receipt Date: 20140421
  Transmission Date: 20141212
  Serious: No
  Sender: FDA-Public Use
  Company Number: US-SA-2013SA117169

PATIENT
  Age: 37 Year
  Sex: Female

DRUGS (2)
  1. ALLEGRA [Suspect]
     Indication: HYPERSENSITIVITY
     Dosage: FREQUENCY-1 TABLET A DAY TWICE A WEEK
     Route: 048
     Dates: start: 20131106
  2. SINGULAIR [Concomitant]

REACTIONS (1)
  - Extra dose administered [Unknown]
